FAERS Safety Report 9914040 (Version 1)
Quarter: 2014Q1

REPORT INFORMATION
  Report Type: Spontaneous
  Country: FR (occurrence: FR)
  Receive Date: 20140220
  Receipt Date: 20140220
  Transmission Date: 20141002
  Serious: Yes (Hospitalization)
  Sender: FDA-Public Use
  Company Number: FR-GLAXOSMITHKLINE-B0969236A

PATIENT
  Age: 12 Year
  Sex: Male

DRUGS (13)
  1. ZOVIRAX [Suspect]
     Indication: PROPHYLAXIS
     Route: 042
     Dates: start: 20130523
  2. FORTUM [Suspect]
     Indication: PYREXIA
     Route: 042
     Dates: start: 20130521, end: 20130521
  3. VANCOMYCINE [Suspect]
     Indication: PYREXIA
     Route: 042
     Dates: start: 20130521, end: 20130521
  4. TIENAM [Suspect]
     Indication: PYREXIA
     Route: 042
     Dates: start: 20130522
  5. CANCIDAS [Suspect]
     Indication: PROPHYLAXIS
     Route: 042
     Dates: start: 20130523
  6. ZOPHREN [Concomitant]
     Dates: start: 201305
  7. CYCLOPHOSPHAMIDE [Concomitant]
     Indication: T-CELL TYPE ACUTE LEUKAEMIA
     Dates: start: 201305
  8. MESNA [Concomitant]
     Indication: T-CELL TYPE ACUTE LEUKAEMIA
     Dates: start: 201305
  9. METHOTREXATE [Concomitant]
     Indication: T-CELL TYPE ACUTE LEUKAEMIA
     Dates: start: 201305
  10. CYTARABINE [Concomitant]
     Indication: T-CELL TYPE ACUTE LEUKAEMIA
     Dates: start: 201305
  11. METHYLPREDNISOLONE [Concomitant]
     Dates: start: 201305
  12. NELARABINE [Concomitant]
     Indication: T-CELL TYPE ACUTE LEUKAEMIA
     Dates: start: 201305
  13. ETOPOSIDE [Concomitant]
     Indication: T-CELL TYPE ACUTE LEUKAEMIA
     Dates: start: 201305

REACTIONS (3)
  - Thrombocytopenia [Not Recovered/Not Resolved]
  - Agranulocytosis [Not Recovered/Not Resolved]
  - Leukopenia [Not Recovered/Not Resolved]
